FAERS Safety Report 9315494 (Version 2)
Quarter: 2013Q3

REPORT INFORMATION
  Report Type: Spontaneous
  Country: JP (occurrence: JP)
  Receive Date: 20130529
  Receipt Date: 20130711
  Transmission Date: 20140515
  Serious: Yes (Hospitalization)
  Sender: FDA-Public Use
  Company Number: JP-B.I. PHARMACEUTICALS,INC./RIDGEFIELD-2013-BI-14836NB

PATIENT
  Age: 82 Year
  Sex: Female
  Weight: 36 kg

DRUGS (9)
  1. PRAZAXA [Suspect]
     Indication: ATRIAL FIBRILLATION
     Dosage: 220 MG
     Route: 048
     Dates: end: 20130510
  2. PRAZAXA [Suspect]
     Dosage: 220 MG
     Route: 048
     Dates: start: 20130516, end: 20130521
  3. HEPARIN NA [Suspect]
     Indication: ATRIAL FIBRILLATION
     Route: 065
     Dates: start: 20130514, end: 20130518
  4. ANCARON [Suspect]
     Indication: ATRIAL FIBRILLATION
     Route: 048
  5. VASOLAN [Suspect]
     Indication: ATRIAL FIBRILLATION
     Route: 048
  6. FUROSEMIDE [Suspect]
     Route: 065
  7. MAINHEART [Suspect]
     Route: 065
  8. ALDACTONE A [Suspect]
     Route: 065
  9. PARIET [Suspect]
     Route: 065

REACTIONS (7)
  - Rectal haemorrhage [Not Recovered/Not Resolved]
  - Eosinophilic pneumonia [Not Recovered/Not Resolved]
  - Constipation [Recovered/Resolved]
  - Large intestinal ulcer [Recovered/Resolved]
  - Activated partial thromboplastin time prolonged [Recovered/Resolved]
  - Rash [Unknown]
  - Faecaloma [None]
